FAERS Safety Report 16383920 (Version 1)
Quarter: 2019Q2

REPORT INFORMATION
  Report Type: Spontaneous
  Country: US (occurrence: US)
  Receive Date: 20190531
  Receipt Date: 20190531
  Transmission Date: 20190711
  Serious: Yes (Hospitalization, Other)
  Sender: FDA-Public Use
  Company Number: None

PATIENT
  Age: 74 Year
  Sex: Female
  Weight: 44.2 kg

DRUGS (1)
  1. EVENITY [Suspect]
     Active Substance: ROMOSOZUMAB-AQQG
     Indication: SENILE OSTEOPOROSIS
     Dosage: ?          OTHER FREQUENCY:ONCE / MONTH X 12;?
     Route: 058
     Dates: start: 20190521, end: 20190521

REACTIONS (3)
  - Cerebral infarction [None]
  - Hemiparesis [None]
  - Paraesthesia [None]

NARRATIVE: CASE EVENT DATE: 20190525
